FAERS Safety Report 5902992-8 (Version None)
Quarter: 2008Q3

REPORT INFORMATION
  Report Type: 
  Country: None (occurrence: None)
  Receive Date: 20080930
  Receipt Date: 20080723
  Transmission Date: 20090109
  Serious: No
  Sender: FDA-Public Use
  Company Number: US-BAYER-200829496NA

PATIENT
  Sex: Female

DRUGS (5)
  1. MIRENA [Suspect]
     Indication: DYSMENORRHOEA
     Route: 015
  2. TOPROL-XL [Concomitant]
  3. PROZAC [Concomitant]
  4. COUMADIN [Concomitant]
  5. VITAMINS [Concomitant]

REACTIONS (2)
  - TOOTH DISORDER [None]
  - VAGINAL HAEMORRHAGE [None]
